FAERS Safety Report 4821017-9 (Version None)
Quarter: 2005Q4

REPORT INFORMATION
  Report Type: 
  Country: None (occurrence: None)
  Receive Date: 20051103
  Receipt Date: 20051025
  Transmission Date: 20060501
  Serious: Yes (Hospitalization)
  Sender: FDA-Public Use
  Company Number: 2005PV003516

PATIENT
  Sex: Male

DRUGS (11)
  1. BYETTA [Suspect]
     Dosage: 5 MCG; BID; SC
     Route: 058
     Dates: start: 20050101
  2. AMARYL [Concomitant]
  3. METFORMIN [Concomitant]
  4. LANTUS [Concomitant]
  5. ACTOS [Concomitant]
  6. ASPIRIN [Concomitant]
  7. LASIX [Concomitant]
  8. NEURONTIN [Concomitant]
  9. VYTORIN [Concomitant]
  10. SYNTHROID [Concomitant]
  11. FOLIC ACID [Concomitant]

REACTIONS (11)
  - CUTANEOUS VASCULITIS [None]
  - DEHYDRATION [None]
  - DIARRHOEA [None]
  - DYSPNOEA [None]
  - LEUKOCYTOCLASTIC VASCULITIS [None]
  - LUNG DISORDER [None]
  - NAUSEA [None]
  - OPEN WOUND [None]
  - PURPURA [None]
  - PYREXIA [None]
  - RENAL FAILURE [None]
